FAERS Safety Report 6606495-7 (Version None)
Quarter: 2010Q1

REPORT INFORMATION
  Report Type: 
  Country: None (occurrence: None)
  Receive Date: 20100226
  Receipt Date: 20100219
  Transmission Date: 20100710
  Serious: Yes (Other)
  Sender: FDA-Public Use
  Company Number: PHHY2010DE03066

PATIENT
  Sex: Female

DRUGS (2)
  1. FEMARA [Suspect]
     Indication: BREAST CANCER
     Dosage: 1 DAILY
     Route: 048
     Dates: start: 20060801
  2. VIGANTOLETTEN [Concomitant]
     Route: 048

REACTIONS (4)
  - HYPOTHYROIDISM [None]
  - LIPOMA [None]
  - THYROID ADENOMA [None]
  - THYROID NEOPLASM [None]
